FAERS Safety Report 4535985-6 (Version None)
Quarter: 2004Q4

REPORT INFORMATION
  Report Type: 
  Country: None (occurrence: None)
  Receive Date: 20041216
  Receipt Date: 20040330
  Transmission Date: 20050328
  Serious: Yes (Death)
  Sender: FDA-Public Use
  Company Number: HQWYE288831MAR04

PATIENT
  Age: 65 Year
  Sex: Female
  Weight: 101.7 kg

DRUGS (7)
  1. EFFEXOR XR [Suspect]
     Indication: ANXIETY
     Dosage: 225 MG 1X PER 1 DAY, ORAL
     Route: 048
     Dates: end: 20031216
  2. PERCOCET [Concomitant]
  3. BEXTRA [Concomitant]
  4. DIOVAN HCT [Concomitant]
  5. TOPROL-XL [Concomitant]
  6. PRILOSEC [Concomitant]
  7. PREMARIN [Concomitant]

REACTIONS (1)
  - DEATH [None]
